FAERS Safety Report 18534362 (Version 1)
Quarter: 2020Q4

REPORT INFORMATION
  Report Type: Report from Study
  Country: JP (occurrence: JP)
  Receive Date: 20201123
  Receipt Date: 20201123
  Transmission Date: 20210114
  Serious: Yes (Other)
  Sender: FDA-Public Use
  Company Number: JP-RECORDATI-2020004771

PATIENT

DRUGS (5)
  1. NEOPROFEN [Suspect]
     Active Substance: IBUPROFEN LYSINE
     Dosage: 3 MILLIGRAM, QD
     Route: 042
     Dates: start: 20200607, end: 20200607
  2. NEOPROFEN [Suspect]
     Active Substance: IBUPROFEN LYSINE
     Indication: PATENT DUCTUS ARTERIOSUS
     Dosage: 5.5 MILLIGRAM, QD
     Route: 042
     Dates: start: 20200606, end: 20200606
  3. NEOPROFEN [Suspect]
     Active Substance: IBUPROFEN LYSINE
     Dosage: 3 MILLIGRAM, QD
     Route: 042
     Dates: start: 20200608, end: 20200608
  4. PRODIF [Concomitant]
     Active Substance: FOSFLUCONAZOLE
     Indication: PRODUCT USED FOR UNKNOWN INDICATION
     Dosage: UNK
     Dates: start: 20200608, end: 20200608
  5. NOBELBAR [Concomitant]
     Active Substance: PHENOBARBITAL SODIUM
     Indication: PRODUCT USED FOR UNKNOWN INDICATION
     Dosage: UNK
     Dates: start: 20200608, end: 20200608

REACTIONS (4)
  - Anaemia neonatal [Recovered/Resolved]
  - Retinopathy of prematurity [Unknown]
  - Inguinal hernia [Not Recovered/Not Resolved]
  - Blood pressure decreased [Recovered/Resolved]

NARRATIVE: CASE EVENT DATE: 20200608
